FAERS Safety Report 5344170-X (Version None)
Quarter: 2007Q2

REPORT INFORMATION
  Report Type: 
  Country: None (occurrence: None)
  Receive Date: 20070604
  Receipt Date: 20070523
  Transmission Date: 20071010
  Serious: Yes (Hospitalization)
  Sender: FDA-Public Use
  Company Number: FR-ROCHE-459186

PATIENT
  Age: 61 Year
  Sex: Female

DRUGS (3)
  1. PEG-INTERFERON ALFA 2A (RO 25-8310) [Suspect]
     Route: 058
     Dates: start: 20060428, end: 20060801
  2. BLINDED THYMOSIN ALFA 1 [Suspect]
     Route: 058
     Dates: start: 20060428, end: 20060801
  3. RIBAVIRIN [Suspect]
     Route: 048
     Dates: start: 20060428, end: 20060801

REACTIONS (1)
  - GENERAL PHYSICAL HEALTH DETERIORATION [None]
